FAERS Safety Report 11079486 (Version 2)
Quarter: 2015Q2

REPORT INFORMATION
  Report Type: Spontaneous
  Country: FR (occurrence: FR)
  Receive Date: 20150430
  Receipt Date: 20150518
  Transmission Date: 20150821
  Serious: Yes (Hospitalization, Other)
  Sender: FDA-Public Use
  Company Number: FR-PFIZER INC-2015143481

PATIENT
  Age: 39 Year
  Sex: Female

DRUGS (9)
  1. XANAX [Suspect]
     Active Substance: ALPRAZOLAM
     Dosage: 0.75 MG, 1X/DAY
     Route: 048
     Dates: end: 20150403
  2. VALIUM [Concomitant]
     Active Substance: DIAZEPAM
     Dosage: 30 MG, DAILY
     Dates: start: 20150403
  3. EFFEXOR LP [Suspect]
     Active Substance: VENLAFAXINE HYDROCHLORIDE
     Dosage: 75 MG, 2X/DAY
     Route: 048
     Dates: end: 2015
  4. LORMETAZEPAM [Concomitant]
     Active Substance: LORMETAZEPAM
     Dosage: 1 MG, 1X/DAY
     Dates: start: 20150403
  5. IMOVANE [Concomitant]
     Active Substance: ZOPICLONE
     Dosage: UNK, AS NEEDED
     Dates: start: 20150403
  6. XEROQUEL [Suspect]
     Active Substance: QUETIAPINE FUMARATE
     Dosage: DECREASED DOSAGE
     Route: 048
  7. TERCIAN [Concomitant]
     Active Substance: CYAMEMAZINE
     Dosage: 62.5 MG, DAILY
     Dates: start: 20150403
  8. XEROQUEL [Suspect]
     Active Substance: QUETIAPINE FUMARATE
     Dosage: 300 MG, 2X/DAY
     Route: 048
  9. DOLIPRANE [Concomitant]
     Active Substance: ACETAMINOPHEN
     Dosage: UNK, AS NEEDED
     Dates: start: 20150403

REACTIONS (2)
  - Basedow^s disease [Unknown]
  - Hyperthyroidism [Unknown]

NARRATIVE: CASE EVENT DATE: 20150404
